FAERS Safety Report 22232593 (Version 1)
Quarter: 2023Q2

REPORT INFORMATION
  Report Type: Spontaneous
  Country: US (occurrence: None)
  Receive Date: 20230420
  Receipt Date: 20230420
  Transmission Date: 20230721
  Serious: No
  Sender: FDA-Public Use
  Company Number: US-ROCHE-3133210

PATIENT
  Sex: Male

DRUGS (10)
  1. ESBRIET [Suspect]
     Active Substance: PIRFENIDONE
     Indication: Idiopathic pulmonary fibrosis
     Dosage: TAKE 1 TABLET 3 TIMES DAILY FOR A WEEK THEN 2 TABLETS 3 TIMES DAILY FOR ANOTHER WEEK AND THEN 3 TABL
     Route: 048
  2. ESBRIET [Suspect]
     Active Substance: PIRFENIDONE
     Route: 048
  3. PEPCID [Concomitant]
     Active Substance: FAMOTIDINE
  4. ASPIRIN [Concomitant]
     Active Substance: ASPIRIN
  5. DUTASTERIDE [Concomitant]
     Active Substance: DUTASTERIDE
  6. HYDROCHLOROTHIAZIDE [Concomitant]
     Active Substance: HYDROCHLOROTHIAZIDE
  7. IPRATROPIUM [Concomitant]
     Active Substance: IPRATROPIUM
  8. LOSARTAN POTASSIUM [Concomitant]
     Active Substance: LOSARTAN POTASSIUM
  9. PANTOPRAZOLE [Concomitant]
     Active Substance: PANTOPRAZOLE
  10. PRAVASTATIN [Concomitant]
     Active Substance: PRAVASTATIN

REACTIONS (10)
  - Nausea [Unknown]
  - Fatigue [Unknown]
  - Weight decreased [Unknown]
  - Dry throat [Unknown]
  - Dyspnoea [Unknown]
  - Depression [Unknown]
  - Cough [Unknown]
  - Eating disorder [Unknown]
  - Decreased appetite [Not Recovered/Not Resolved]
  - Ageusia [Not Recovered/Not Resolved]
